FAERS Safety Report 8154307-5 (Version None)
Quarter: 2012Q1

REPORT INFORMATION
  Report Type: 
  Country: None (occurrence: None)
  Receive Date: 20120217
  Receipt Date: 20120217
  Transmission Date: 20120608
  Serious: Yes (Hospitalization)
  Sender: FDA-Public Use
  Company Number: None

PATIENT
  Sex: Female
  Weight: 10.41 kg

DRUGS (3)
  1. G-CSF (FILGRASTIM, AMGEN) [Suspect]
     Dosage: 357MCG
  2. THIOTEPA [Suspect]
     Dosage: 210 MG
  3. CARBOPLATIN [Suspect]
     Dosage: 356 MG

REACTIONS (5)
  - NEUTROPENIC COLITIS [None]
  - PULMONARY OEDEMA [None]
  - SEPTIC SHOCK [None]
  - RESPIRATORY FAILURE [None]
  - POST PROCEDURAL COMPLICATION [None]
